FAERS Safety Report 19363187 (Version 1)
Quarter: 2021Q2

REPORT INFORMATION
  Report Type: Spontaneous
  Country: US (occurrence: US)
  Receive Date: 20210602
  Receipt Date: 20210602
  Transmission Date: 20210717
  Serious: No
  Sender: FDA-Public Use
  Company Number: US-ASTRAZENECA-2021A408389

PATIENT
  Sex: Female
  Weight: 48.5 kg

DRUGS (5)
  1. OZEMPIC [Concomitant]
     Active Substance: SEMAGLUTIDE
  2. BYDUREON BCISE [Suspect]
     Active Substance: EXENATIDE
     Indication: TYPE 2 DIABETES MELLITUS
     Route: 058
     Dates: start: 20210210
  3. LAXATIVES [Concomitant]
     Active Substance: UNSPECIFIED INGREDIENT
     Dosage: UNKNOWN DOSE EVERY MORNING
  4. GLIPIZIDE. [Concomitant]
     Active Substance: GLIPIZIDE
  5. METFORMIN [Concomitant]
     Active Substance: METFORMIN HYDROCHLORIDE

REACTIONS (10)
  - Weight increased [Unknown]
  - Abdominal distension [Unknown]
  - Constipation [Unknown]
  - Product dose omission issue [Unknown]
  - Injection site nodule [Unknown]
  - Injection site pain [Unknown]
  - Gastric disorder [Unknown]
  - Dyspepsia [Unknown]
  - Eructation [Unknown]
  - Intentional product misuse [Unknown]
